FAERS Safety Report 7797697-5 (Version None)
Quarter: 2011Q4

REPORT INFORMATION
  Report Type: 
  Country: None (occurrence: None)
  Receive Date: 20111005
  Receipt Date: 20110926
  Transmission Date: 20120403
  Serious: Yes (Other)
  Sender: FDA-Public Use
  Company Number: PHHY2011JP61026

PATIENT
  Sex: Female

DRUGS (38)
  1. CLOZARIL [Suspect]
     Dosage: 100 MG, UNK
     Route: 048
     Dates: start: 20100910, end: 20100911
  2. SILECE [Concomitant]
     Indication: SCHIZOPHRENIA
     Dosage: 1 MG, UNK
     Route: 048
     Dates: start: 20100709, end: 20101026
  3. OLANZAPINE [Concomitant]
  4. BLONANSERIN [Concomitant]
     Route: 048
  5. CLOZARIL [Suspect]
     Dosage: 125 MG, UNK
     Route: 048
     Dates: start: 20100912, end: 20100914
  6. CLOZARIL [Suspect]
     Dosage: 350 MG, UNK
     Route: 048
     Dates: start: 20101027, end: 20101123
  7. CLOZARIL [Suspect]
     Dosage: 450 MG, UNK
     Route: 048
     Dates: start: 20110119, end: 20110206
  8. PERPHENAZINE [Concomitant]
     Dosage: 4 MG, UNK
     Route: 048
  9. CLOZARIL [Suspect]
     Dosage: 25 MG, UNK
     Route: 048
     Dates: start: 20100903, end: 20100904
  10. CLOZARIL [Suspect]
     Dosage: 250 MG, UNK
     Route: 048
     Dates: start: 20101006, end: 20101012
  11. CLOZARIL [Suspect]
     Dosage: 400 MG, UNK
     Route: 048
     Dates: start: 20101124, end: 20110118
  12. PERPHENAZINE [Concomitant]
     Dosage: 8 MG, UNK
     Route: 048
     Dates: end: 20100909
  13. LITHIUM CARBONATE [Concomitant]
     Indication: SCHIZOPHRENIA
     Dosage: 800 MG, UNK
     Route: 048
     Dates: start: 20110301, end: 20110901
  14. CLOZARIL [Suspect]
     Dosage: 150 MG, UNK
     Route: 048
     Dates: start: 20100915, end: 20100917
  15. AMOXAPINE [Concomitant]
     Indication: SCHIZOPHRENIA
     Dosage: 50 MG, UNK
     Route: 048
     Dates: start: 20100723, end: 20100907
  16. PROMETHAZINE HCL [Concomitant]
     Dosage: 50 MG, UNK
     Route: 048
     Dates: end: 20101005
  17. CLOZARIL [Suspect]
     Indication: SCHIZOPHRENIA, PARANOID TYPE
     Dosage: 12.5 MG, UNK
     Route: 048
     Dates: start: 20100901, end: 20100902
  18. CLOZARIL [Suspect]
     Dosage: 200 MG, UNK
     Route: 048
     Dates: start: 20100922, end: 20101005
  19. PHENOBARBITAL TAB [Concomitant]
     Indication: SCHIZOPHRENIA
     Dosage: 1 DF, UNK
     Route: 048
     Dates: start: 20100407, end: 20100902
  20. CLOZARIL [Suspect]
     Dosage: 175 MG, UNK
     Route: 048
     Dates: start: 20100918, end: 20100921
  21. PERPHENAZINE [Concomitant]
     Indication: SCHIZOPHRENIA
     Dosage: 8 MG, UNK
     Route: 048
     Dates: start: 20100827, end: 20100909
  22. PROMETHAZINE HCL [Concomitant]
     Indication: SCHIZOPHRENIA
     Dosage: 25 MG, UNK
     Route: 048
     Dates: start: 20100929, end: 20101005
  23. PEROSPIRONE HYDROCHLORIDE [Concomitant]
     Route: 048
  24. CLOZARIL [Suspect]
     Dosage: 75 MG, UNK
     Route: 048
     Dates: start: 20100908, end: 20100909
  25. CLOZARIL [Suspect]
     Dosage: 300 MG, UNK
     Route: 048
     Dates: start: 20101013, end: 20101026
  26. CLOZARIL [Suspect]
     Dosage: 500 MG, UNK
     Route: 048
     Dates: start: 20110207, end: 20110703
  27. LITHIUM CARBONATE [Concomitant]
     Dosage: 600 MG, UNK
     Route: 048
  28. AMOXAPINE [Concomitant]
     Dosage: 25 MG, UNK
     Route: 048
     Dates: end: 20100907
  29. PROMETHAZINE HCL [Concomitant]
     Indication: SALIVARY HYPERSECRETION
     Dosage: 50 MG, UNK
     Route: 048
  30. FLUPHENAZINE HCL [Concomitant]
     Route: 048
  31. RISPERIDONE [Concomitant]
     Route: 048
  32. ARIPIPRAZOLE [Concomitant]
     Route: 048
  33. VALPROATE SODIUM [Concomitant]
     Indication: CONVULSION PROPHYLAXIS
     Dosage: 600 MG, UNK
     Route: 048
     Dates: start: 20110704, end: 20110901
  34. CLOZARIL [Suspect]
     Dosage: 50 MG, UNK
     Route: 048
     Dates: start: 20100905, end: 20100907
  35. CLOZARIL [Suspect]
     Dosage: 300 MG, UNK
     Route: 048
     Dates: start: 20110704, end: 20110901
  36. LITHIUM CARBONATE [Concomitant]
     Dosage: 600 MG, UNK
     Route: 048
  37. SCOPOLAMINE [Concomitant]
     Dosage: 10 MG, UNK
     Route: 048
     Dates: start: 20101208, end: 20110301
  38. ZOTEPINE [Concomitant]
     Route: 048

REACTIONS (5)
  - GRAND MAL CONVULSION [None]
  - LYMPHOCYTE COUNT DECREASED [None]
  - EOSINOPHIL COUNT INCREASED [None]
  - SALIVARY HYPERSECRETION [None]
  - MONOCYTE COUNT INCREASED [None]
